FAERS Safety Report 13618215 (Version 1)
Quarter: 2017Q2

REPORT INFORMATION
  Report Type: Report from Study
  Country: ES (occurrence: ES)
  Receive Date: 20170606
  Receipt Date: 20170606
  Transmission Date: 20170830
  Serious: Yes (Death, Other)
  Sender: FDA-Public Use
  Company Number: ES-PFIZER INC-2017240085

PATIENT
  Age: 31 Year

DRUGS (4)
  1. DOXORUBICIN HCL [Suspect]
     Active Substance: DOXORUBICIN HYDROCHLORIDE
     Indication: MALIGNANT FIBROUS HISTIOCYTOMA
     Dosage: UNK
  2. VINCRISTINE SULFATE. [Suspect]
     Active Substance: VINCRISTINE SULFATE
     Indication: MALIGNANT FIBROUS HISTIOCYTOMA
     Dosage: UNK
  3. CYCLOPHOSPHAMIDE. [Suspect]
     Active Substance: CYCLOPHOSPHAMIDE
     Indication: MALIGNANT FIBROUS HISTIOCYTOMA
     Dosage: UNK
  4. DACARBAZINE. [Suspect]
     Active Substance: DACARBAZINE
     Indication: MALIGNANT FIBROUS HISTIOCYTOMA
     Dosage: UNK

REACTIONS (2)
  - Second primary malignancy [Fatal]
  - Ewing^s sarcoma [Fatal]
